FAERS Safety Report 18462897 (Version 3)
Quarter: 2021Q3

REPORT INFORMATION
  Report Type: Spontaneous
  Country: US (occurrence: US)
  Receive Date: 20201104
  Receipt Date: 20210707
  Transmission Date: 20211014
  Serious: Yes (Other)
  Sender: FDA-Public Use
  Company Number: US-PFIZER INC-2020426760

PATIENT
  Age: 70 Year
  Sex: Male

DRUGS (1)
  1. INLYTA [Suspect]
     Active Substance: AXITINIB
     Indication: RENAL CELL CARCINOMA
     Dosage: 5 MG

REACTIONS (5)
  - Aphonia [Unknown]
  - Lower limb fracture [Unknown]
  - Listless [Unknown]
  - Neoplasm progression [Unknown]
  - Blood pressure increased [Recovering/Resolving]
